FAERS Safety Report 4819413-9 (Version None)
Quarter: 2005Q4

REPORT INFORMATION
  Report Type: 
  Country: None (occurrence: None)
  Receive Date: 20051031
  Receipt Date: 20050728
  Transmission Date: 20060501
  Serious: No
  Sender: FDA-Public Use
  Company Number: 2005PV000650

PATIENT
  Age: 78 Year
  Sex: Male
  Weight: 102.0593 kg

DRUGS (10)
  1. SYMLIN [Suspect]
     Indication: DIABETES MELLITUS NON-INSULIN-DEPENDENT
     Dosage: 120 MCG; BID; SC
     Route: 058
     Dates: start: 20050711
  2. HUMULIN 70/30 [Concomitant]
  3. TOPROL-XL [Concomitant]
  4. CHLOR-KON [Concomitant]
  5. AVAPRO [Concomitant]
  6. ZETIA [Concomitant]
  7. FUROSEMIDE [Concomitant]
  8. ASPIRIN [Concomitant]
  9. VITAMIN E [Concomitant]
  10. CENTRUM SILVER [Concomitant]

REACTIONS (2)
  - BLOOD GLUCOSE INCREASED [None]
  - WEIGHT DECREASED [None]
